FAERS Safety Report 23113110 (Version 2)
Quarter: 2025Q4

REPORT INFORMATION
  Report Type: Report from Study
  Country: US (occurrence: US)
  Receive Date: 20231027
  Receipt Date: 20251209
  Transmission Date: 20260118
  Serious: Yes (Other)
  Sender: ABBVIE
  Company Number: US-ABBVIE-5466088

PATIENT
  Age: 70 Year
  Sex: Female
  Weight: 85 kg

DRUGS (1)
  1. RESTASIS [Suspect]
     Active Substance: CYCLOSPORINE
     Indication: Glaucoma
     Dosage: STRENGTH 0.5MG/ML, 1 DROP TO BOTH EYES TWICE DAILY,
     Route: 047

REACTIONS (4)
  - Intraocular pressure increased [Recovered/Resolved]
  - Dry eye [Not Recovered/Not Resolved]
  - Eye pain [Recovered/Resolved]
  - Cataract [Not Recovered/Not Resolved]

NARRATIVE: CASE EVENT DATE: 20220101
